FAERS Safety Report 13733777 (Version 1)
Quarter: 2017Q3

REPORT INFORMATION
  Report Type: Spontaneous
  Country: IT (occurrence: IT)
  Receive Date: 20170707
  Receipt Date: 20170707
  Transmission Date: 20171127
  Serious: Yes (Hospitalization)
  Sender: FDA-Public Use
  Company Number: IT-009507513-1706ITA010224

PATIENT
  Age: 44 Year
  Sex: Male

DRUGS (1)
  1. KEYTRUDA [Suspect]
     Active Substance: PEMBROLIZUMAB
     Indication: LUNG NEOPLASM MALIGNANT
     Dosage: 200 MG, CYCLICAL
     Route: 042
     Dates: start: 20170614, end: 20170614

REACTIONS (3)
  - Pain in extremity [Unknown]
  - Blood creatine abnormal [Unknown]
  - Myositis [Unknown]

NARRATIVE: CASE EVENT DATE: 20170619
